FAERS Safety Report 5805412-7 (Version None)
Quarter: 2008Q3

REPORT INFORMATION
  Report Type: 
  Country: None (occurrence: None)
  Receive Date: 20080710
  Receipt Date: 20080703
  Transmission Date: 20090109
  Serious: Yes (Other)
  Sender: FDA-Public Use
  Company Number: GB-ABBOTT-08P-167-0461224-00

PATIENT
  Age: 70 Year
  Sex: Female

DRUGS (3)
  1. ERYTHROMYCIN BASE [Suspect]
     Indication: EAR INFECTION
     Route: 048
     Dates: start: 20070317, end: 20070322
  2. ACETYLSALICYLIC ACID SRT [Concomitant]
     Indication: DRUG USE FOR UNKNOWN INDICATION
  3. OLBAS OIL [Concomitant]
     Indication: DRUG USE FOR UNKNOWN INDICATION

REACTIONS (7)
  - BODY TEMPERATURE INCREASED [None]
  - CHEST PAIN [None]
  - DRY SKIN [None]
  - DYSPNOEA [None]
  - RASH [None]
  - SWOLLEN TONGUE [None]
  - THROAT TIGHTNESS [None]
